FAERS Safety Report 5696360-4 (Version None)
Quarter: 2008Q2

REPORT INFORMATION
  Report Type: 
  Country: None (occurrence: None)
  Receive Date: 20080408
  Receipt Date: 20080326
  Transmission Date: 20081010
  Serious: Yes (Other)
  Sender: FDA-Public Use
  Company Number: US-PFIZER INC-2008027680

PATIENT
  Age: 60 Year
  Sex: Female

DRUGS (8)
  1. CHANTIX [Suspect]
  2. LUNESTA [Suspect]
     Indication: INSOMNIA
     Route: 048
  3. DILTIAZEM [Concomitant]
  4. THEOPHYLLINE [Concomitant]
  5. SINUS INHALACIONES [Concomitant]
  6. OXYGEN [Concomitant]
  7. ALBUTEROL [Concomitant]
  8. PSEUDOEPHEDRINE HCL [Concomitant]

REACTIONS (6)
  - ABNORMAL DREAMS [None]
  - CHEST X-RAY ABNORMAL [None]
  - DRUG EFFECT DECREASED [None]
  - GAIT DISTURBANCE [None]
  - LUNG INFECTION [None]
  - NAUSEA [None]
